FAERS Safety Report 22025091 (Version 1)
Quarter: 2023Q1

REPORT INFORMATION
  Report Type: Spontaneous
  Country: US (occurrence: None)
  Receive Date: 20230223
  Receipt Date: 20230223
  Transmission Date: 20230417
  Serious: No
  Sender: FDA-Public Use
  Company Number: US-ROCHE-3090888

PATIENT
  Age: 19 Year
  Sex: Female
  Weight: 70.370 kg

DRUGS (18)
  1. XOLAIR [Suspect]
     Active Substance: OMALIZUMAB
     Indication: Urticaria
     Route: 058
     Dates: start: 20220428, end: 20220428
  2. DUPIXENT [Concomitant]
     Active Substance: DUPILUMAB
  3. HYDROXYZINE [Concomitant]
     Active Substance: HYDROXYZINE HYDROCHLORIDE
  4. TESSALON [Concomitant]
     Active Substance: BENZONATATE
  5. DESONIDE [Concomitant]
     Active Substance: DESONIDE
     Dosage: WHEN NECESSARY
     Route: 065
  6. BENADRYL [Concomitant]
     Active Substance: DIPHENHYDRAMINE HYDROCHLORIDE
     Dosage: WHEN NECESSARY
  7. VANICREAM [Concomitant]
     Active Substance: TITANIUM DIOXIDE\ZINC OXIDE
  8. LORATADINE [Concomitant]
     Active Substance: LORATADINE
  9. NAPROXEN [Concomitant]
     Active Substance: NAPROXEN
     Dosage: WHEN NECESSARY
  10. DONEPEZIL [Concomitant]
     Active Substance: DONEPEZIL
  11. SEROQUEL [Concomitant]
     Active Substance: QUETIAPINE FUMARATE
     Dosage: AT BEDTIME
  12. TRIAMCINOLONE [Concomitant]
     Active Substance: TRIAMCINOLONE
     Dosage: 1 PERCENT
  13. ALBUTEROL [Concomitant]
     Active Substance: ALBUTEROL
     Dosage: 90, UNIT NOT REPORTED AS THEY DON^T PRESCRIBE IT
  14. FLUTICASONE [Concomitant]
     Active Substance: FLUTICASONE
  15. DOXEPIN [Concomitant]
     Active Substance: DOXEPIN
     Dosage: AT BEDTIME
  16. EPIPEN [Concomitant]
     Active Substance: EPINEPHRINE
     Dosage: WHEN NECESSARY
  17. LEXAPRO [Concomitant]
     Active Substance: ESCITALOPRAM OXALATE
  18. TACROLIMUS [Concomitant]
     Active Substance: TACROLIMUS

REACTIONS (4)
  - Vision blurred [Recovered/Resolved]
  - Throat irritation [Recovered/Resolved]
  - Pruritus [Recovered/Resolved]
  - Erythema [Recovered/Resolved]

NARRATIVE: CASE EVENT DATE: 20220428
